FAERS Safety Report 7819660-8 (Version None)
Quarter: 2011Q4

REPORT INFORMATION
  Report Type: 
  Country: None (occurrence: None)
  Receive Date: 20111018
  Receipt Date: 20110801
  Transmission Date: 20120403
  Serious: No
  Sender: FDA-Public Use
  Company Number: US-ASTRAZENECA-2011SE39261

PATIENT
  Age: 50 Year
  Sex: Female

DRUGS (3)
  1. SYMBICORT [Suspect]
     Dosage: ONCE DAILY
     Route: 055
  2. SYMBICORT [Suspect]
     Route: 055
     Dates: start: 20110501
  3. SYMBICORT [Suspect]
     Dosage: TWICE DAILY
     Route: 055

REACTIONS (3)
  - ASTHMA [None]
  - DYSPNOEA [None]
  - INCORRECT DOSE ADMINISTERED [None]
